FAERS Safety Report 14113795 (Version 6)
Quarter: 2018Q2

REPORT INFORMATION
  Report Type: Report from Study
  Country: CA (occurrence: CA)
  Receive Date: 20171023
  Receipt Date: 20180405
  Transmission Date: 20180711
  Serious: Yes (Hospitalization, Other)
  Sender: FDA-Public Use
  Company Number: CA-JNJFOC-20170917367

PATIENT
  Age: 41 Year
  Sex: Female
  Weight: 75.3 kg

DRUGS (4)
  1. STELARA [Suspect]
     Active Substance: USTEKINUMAB
     Indication: CROHN^S DISEASE
     Route: 058
     Dates: start: 20170613
  2. STELARA [Suspect]
     Active Substance: USTEKINUMAB
     Indication: CROHN^S DISEASE
     Route: 058
  3. STELARA [Suspect]
     Active Substance: USTEKINUMAB
     Indication: CROHN^S DISEASE
     Route: 058
     Dates: start: 20170808
  4. STELARA [Suspect]
     Active Substance: USTEKINUMAB
     Indication: CROHN^S DISEASE
     Route: 058
     Dates: start: 20160714

REACTIONS (11)
  - Post procedural infection [Unknown]
  - Product use issue [Unknown]
  - Vomiting [Unknown]
  - Dehydration [Unknown]
  - Procedural pain [Not Recovered/Not Resolved]
  - Postoperative wound infection [Unknown]
  - Intestinal resection [Unknown]
  - Off label use [Unknown]
  - Nausea [Unknown]
  - Crohn^s disease [Recovering/Resolving]
  - Drug ineffective [Unknown]

NARRATIVE: CASE EVENT DATE: 2017
